FAERS Safety Report 7237345-6 (Version None)
Quarter: 2011Q1

REPORT INFORMATION
  Report Type: 
  Country: None (occurrence: None)
  Receive Date: 20110121
  Receipt Date: 20101025
  Transmission Date: 20110831
  Serious: No
  Sender: FDA-Public Use
  Company Number: A0888647A

PATIENT
  Age: 65 Year
  Sex: Male

DRUGS (9)
  1. LEVETIRACETAM [Concomitant]
  2. MEPRON [Suspect]
     Indication: PNEUMONIA FUNGAL
     Dosage: 2TSP PER DAY
     Route: 048
     Dates: start: 20100801
  3. PREDNISONE [Concomitant]
  4. FLOMAX [Concomitant]
  5. PRAVASTATIN [Concomitant]
  6. OMEPRAZOLE [Concomitant]
  7. RISPERIDONE [Concomitant]
  8. AVODART [Concomitant]
  9. ASPIRIN [Concomitant]

REACTIONS (1)
  - OVERDOSE [None]
